FAERS Safety Report 7450713-2 (Version None)
Quarter: 2011Q2

REPORT INFORMATION
  Report Type: 
  Country: None (occurrence: None)
  Receive Date: 20110429
  Receipt Date: 20110429
  Transmission Date: 20111010
  Serious: Yes (Hospitalization)
  Sender: FDA-Public Use
  Company Number: None

PATIENT
  Age: 68 Year
  Sex: Male
  Weight: 144.7 kg

DRUGS (15)
  1. WARFARIN [Concomitant]
  2. ACYCLOVIR [Concomitant]
  3. VELCADE [Suspect]
     Indication: CHEMOTHERAPY
     Dosage: 3.5MG DAY 1, 4, 8 + 11 IV RECENT
     Route: 042
  4. SAW PALMETTO [Concomitant]
  5. OMEPRAZOLE [Concomitant]
  6. ASPIRIN [Concomitant]
  7. OTC POTASSIUM [Concomitant]
  8. FLOMAX [Concomitant]
  9. DECADRON [Concomitant]
  10. REVLIMID [Suspect]
     Indication: CHEMOTHERAPY
     Dosage: 25MG DAILY PO RECENT
     Route: 048
  11. FLAX SEED [Concomitant]
  12. CELEBREX [Concomitant]
  13. AVODART [Concomitant]
  14. M.V.I. [Concomitant]
  15. NIACIN [Concomitant]

REACTIONS (2)
  - ORTHOSTATIC HYPOTENSION [None]
  - RASH MACULO-PAPULAR [None]
